FAERS Safety Report 8600067-0 (Version None)
Quarter: 2012Q3

REPORT INFORMATION
  Report Type: 
  Country: None (occurrence: None)
  Receive Date: 20120816
  Receipt Date: 20120808
  Transmission Date: 20120928
  Serious: Yes (Hospitalization)
  Sender: FDA-Public Use
  Company Number: US-BAXTER-2012BAX012094

PATIENT
  Sex: Female

DRUGS (2)
  1. DIANEAL [Suspect]
     Route: 033
  2. DIANEAL [Suspect]
     Indication: PERITONEAL DIALYSIS
     Route: 033

REACTIONS (6)
  - DEHYDRATION [None]
  - BLOOD GLUCOSE DECREASED [None]
  - HYPOTENSION [None]
  - MALAISE [None]
  - BLOOD POTASSIUM DECREASED [None]
  - DECUBITUS ULCER [None]
